FAERS Safety Report 20865125 (Version 1)
Quarter: 2022Q2

REPORT INFORMATION
  Report Type: Spontaneous
  Country: CN (occurrence: CN)
  Receive Date: 20220524
  Receipt Date: 20220524
  Transmission Date: 20220721
  Serious: Yes (Other)
  Sender: FDA-Public Use
  Company Number: CN-SUN PHARMACEUTICAL INDUSTRIES LTD-2022R1-337631

PATIENT
  Age: 68 Year
  Sex: Male

DRUGS (2)
  1. CARBOPLATIN [Suspect]
     Active Substance: CARBOPLATIN
     Indication: Chemotherapy
     Dosage: UNK (2 CYCLES)
     Route: 065
     Dates: start: 202012
  2. PEMETREXED [Suspect]
     Active Substance: PEMETREXED
     Indication: Chemotherapy
     Dosage: UNK (2 CYCLES)
     Route: 065
     Dates: start: 202012

REACTIONS (1)
  - Therapeutic response decreased [Unknown]

NARRATIVE: CASE EVENT DATE: 20201201
